FAERS Safety Report 25824733 (Version 1)
Quarter: 2025Q3

REPORT INFORMATION
  Report Type: Spontaneous
  Country: US (occurrence: US)
  Receive Date: 20250919
  Receipt Date: 20250919
  Transmission Date: 20251021
  Serious: No
  Sender: LUNDBECK
  Company Number: US-LUNDBECK-DKLU4019432

PATIENT
  Age: 45 Year
  Sex: Female
  Weight: 129.27 kg

DRUGS (1)
  1. VYEPTI [Suspect]
     Active Substance: EPTINEZUMAB-JJMR
     Indication: Product used for unknown indication
     Dosage: 100 MILLIGRAM
     Route: 041
     Dates: start: 20250627

REACTIONS (2)
  - Hypotension [Recovered/Resolved]
  - Nausea [Recovered/Resolved]
